FAERS Safety Report 4957873-3 (Version None)
Quarter: 2006Q1

REPORT INFORMATION
  Report Type: 
  Country: None (occurrence: None)
  Receive Date: 20060324
  Receipt Date: 20060315
  Transmission Date: 20060701
  Serious: Yes (Hospitalization)
  Sender: FDA-Public Use
  Company Number: 2006-03-0893

PATIENT
  Age: 69 Year
  Sex: Male

DRUGS (2)
  1. VIRAFERONPEG REDIPEN (PEG INTERFERON ALFA-2B RECOMBINANT) [Suspect]
     Indication: HEPATITIS C
     Dosage: SUBCUTANEOUS
     Route: 058
     Dates: start: 20051115, end: 20060128
  2. REBETOL [Suspect]
     Indication: HEPATITIS C
     Dosage: 1200 MG QD ORAL
     Route: 048
     Dates: start: 20051115, end: 20060128

REACTIONS (1)
  - MYASTHENIC SYNDROME [None]
